FAERS Safety Report 8258319-2 (Version None)
Quarter: 2012Q2

REPORT INFORMATION
  Report Type: 
  Country: None (occurrence: None)
  Receive Date: 20120404
  Receipt Date: 20120330
  Transmission Date: 20120825
  Serious: No
  Sender: FDA-Public Use
  Company Number: US-TEVA-331310USA

PATIENT
  Sex: Female

DRUGS (3)
  1. HUMIRA [Concomitant]
     Indication: CROHN'S DISEASE
  2. DAPSONE [Concomitant]
     Indication: CROHN'S DISEASE
  3. PLAN B ONE-STEP [Suspect]
     Indication: POST COITAL CONTRACEPTION
     Dosage: 1.5 MILLIGRAM;
     Route: 048
     Dates: start: 20120324, end: 20120324

REACTIONS (1)
  - MENSTRUATION IRREGULAR [None]
